FAERS Safety Report 15326981 (Version 1)
Quarter: 2018Q3

REPORT INFORMATION
  Report Type: Report from Study
  Country: US (occurrence: US)
  Receive Date: 20180828
  Receipt Date: 20180828
  Transmission Date: 20181010
  Serious: Yes (Other)
  Sender: FDA-Public Use
  Company Number: US-CELGENEUS-USA-20180807258

PATIENT
  Age: 75 Year
  Sex: Female

DRUGS (5)
  1. DHAP [Concomitant]
     Indication: B-CELL LYMPHOMA
     Dosage: 3RD LINE THERAPY
     Route: 065
     Dates: start: 201807, end: 201808
  2. MABTHERA [Concomitant]
     Active Substance: RITUXIMAB
     Dosage: 3RD LINE THERAPY
     Route: 041
     Dates: start: 201807, end: 201808
  3. REVLIMID [Suspect]
     Active Substance: LENALIDOMIDE
     Indication: B-CELL LYMPHOMA
     Dosage: 3RD LINE THERAPY
     Route: 048
     Dates: start: 201807, end: 201808
  4. REVLIMID [Suspect]
     Active Substance: LENALIDOMIDE
     Indication: OFF LABEL USE
  5. MABTHERA [Concomitant]
     Active Substance: RITUXIMAB
     Indication: B-CELL LYMPHOMA
     Dosage: 2ND LINE THERAPY
     Route: 041

REACTIONS (1)
  - Arrhythmia [Unknown]

NARRATIVE: CASE EVENT DATE: 2018
